FAERS Safety Report 23910971 (Version 1)
Quarter: 2024Q2

REPORT INFORMATION
  Report Type: Spontaneous
  Country: US (occurrence: US)
  Receive Date: 20240528
  Receipt Date: 20240528
  Transmission Date: 20240716
  Serious: No
  Sender: FDA-Public Use
  Company Number: US-AVADEL CNS PHARMACEUTICALS, LLC-2024AVA00587

PATIENT
  Age: 42 Year
  Sex: Female

DRUGS (1)
  1. LUMRYZ [Suspect]
     Active Substance: SODIUM OXYBATE
     Dosage: UNK, NIGHT

REACTIONS (4)
  - Middle insomnia [Unknown]
  - Somnambulism [Unknown]
  - Dizziness [Unknown]
  - Nocturia [Unknown]

NARRATIVE: CASE EVENT DATE: 20240401
